FAERS Safety Report 24125289 (Version 1)
Quarter: 2024Q3

REPORT INFORMATION
  Report Type: Spontaneous
  Country: US (occurrence: US)
  Receive Date: 20240723
  Receipt Date: 20240723
  Transmission Date: 20241016
  Serious: Yes (Hospitalization, Other)
  Sender: DR REDDYS
  Company Number: US-DRL-USA-LIT/USA/24/0010518

PATIENT
  Age: 19 Year
  Sex: Female

DRUGS (2)
  1. DOXYCYCLINE [Suspect]
     Active Substance: DOXYCYCLINE\DOXYCYCLINE HYCLATE
     Indication: Pneumonia chlamydial
  2. DOXORUBICIN [Suspect]
     Active Substance: DOXORUBICIN
     Indication: Desmoplastic small round cell tumour

REACTIONS (5)
  - Drug ineffective for unapproved indication [Unknown]
  - Flank pain [Unknown]
  - Haemoptysis [Unknown]
  - Condition aggravated [Unknown]
  - Malignant neoplasm progression [Unknown]
